FAERS Safety Report 8002472-2 (Version None)
Quarter: 2011Q4

REPORT INFORMATION
  Report Type: 
  Country: None (occurrence: None)
  Receive Date: 20111219
  Receipt Date: 20111201
  Transmission Date: 20120403
  Serious: Yes (Other)
  Sender: FDA-Public Use
  Company Number: 2011-01331

PATIENT
  Sex: Female

DRUGS (9)
  1. CINNARIZINE [Concomitant]
  2. FLUOXETINE [Concomitant]
  3. ADCAL-D3 [Concomitant]
  4. ACETAMINOPHEN [Concomitant]
  5. ALENDRONIC ACID [Concomitant]
  6. ALBUTEROL SULFATE AUTOHALER [Concomitant]
  7. BECLOMETASONE DIPROPIONATE + BECLOMETHASONE DIPROPIONATE (QVAR) [Concomitant]
  8. SIMVASTATIN [Suspect]
     Indication: CEREBROVASCULAR ACCIDENT PROPHYLAXIS
     Dosage: 40 MG (40 MG), ORAL
     Route: 048
     Dates: start: 20111108, end: 20111110
  9. IRON (FERROUS FUMARATE) [Concomitant]

REACTIONS (1)
  - AGGRESSION [None]
